FAERS Safety Report 5041786-5 (Version None)
Quarter: 2006Q2

REPORT INFORMATION
  Report Type: 
  Country: None (occurrence: None)
  Receive Date: 20060630
  Receipt Date: 20060621
  Transmission Date: 20061013
  Serious: Yes (Congenital Anomaly)
  Sender: FDA-Public Use
  Company Number: 2006078842

PATIENT
  Sex: Male
  Weight: 2.763 kg

DRUGS (5)
  1. VIRACEPT [Suspect]
     Indication: HIV TEST POSITIVE
     Dosage: 2500 MG (1250 MG, 2 IN 1 D, ORAL
     Route: 048
     Dates: start: 20050916
  2. COMBIVIR [Suspect]
     Indication: HIV TEST POSITIVE
     Dosage: 2 TABS (2 IN 1 D), ORAL
     Route: 048
     Dates: start: 19980122
  3. EFAVIRENZ [Suspect]
     Indication: HIV TEST POSITIVE
     Dosage: 600 MG (600 MG, 1 IN 1 D), ORAL
     Route: 048
     Dates: start: 20010228
  4. RETROVIR [Suspect]
     Dosage: 2 MG KG HOUR, INTRAVENOUS; 1 MG KG  HOUR, INTRAVENOUS
     Route: 042
     Dates: start: 20060119, end: 20060119
  5. RETROVIR [Suspect]
     Dosage: 2 MG KG HOUR, INTRAVENOUS; 1 MG KG  HOUR, INTRAVENOUS
     Route: 042
     Dates: start: 20060119, end: 20060122

REACTIONS (7)
  - CARDIAC MURMUR [None]
  - CONGENITAL ANOMALY [None]
  - CONGENITAL MUSCULOSKELETAL ANOMALY [None]
  - DRUG EXPOSURE DURING PREGNANCY [None]
  - EYELID PTOSIS CONGENITAL [None]
  - HYDROCELE [None]
  - PREGNANCY [None]
